FAERS Safety Report 9116514 (Version 1)
Quarter: 2013Q1

REPORT INFORMATION
  Report Type: Spontaneous
  Country: AU (occurrence: AU)
  Receive Date: 20130225
  Receipt Date: 20130225
  Transmission Date: 20140127
  Serious: Yes (Other)
  Sender: FDA-Public Use
  Company Number: PHHY2013AU017414

PATIENT
  Age: 70 Year
  Sex: Female

DRUGS (8)
  1. CICLOSPORIN [Suspect]
  2. AMITRIPTYLINE [Concomitant]
  3. ATENOLOL [Concomitant]
  4. EZETIMIBE [Concomitant]
  5. GLICLAZIDE [Concomitant]
  6. HYDROXYCHLOROQUINE SULFATE [Concomitant]
  7. PANTOPRAZOLE [Concomitant]
  8. PERINDOPRIL [Concomitant]

REACTIONS (8)
  - Aphasia [Unknown]
  - Asthenia [Unknown]
  - Dizziness [Unknown]
  - Vomiting [Unknown]
  - Convulsion [Unknown]
  - Creatinine renal clearance increased [Unknown]
  - Fatigue [Unknown]
  - Headache [Unknown]
